FAERS Safety Report 4686086-8 (Version None)
Quarter: 2005Q2

REPORT INFORMATION
  Report Type: 
  Country: None (occurrence: None)
  Receive Date: 20050609
  Receipt Date: 19930712
  Transmission Date: 20051028
  Serious: Yes (Death, Hospitalization)
  Sender: FDA-Public Use
  Company Number: 199302285HAG

PATIENT
  Age: 73 Year
  Sex: Male

DRUGS (7)
  1. FRUSEMIDE [Suspect]
     Indication: FIBROSIS
     Dosage: DOSE: UNK
  2. AMIODARONE HYDROCHLORIDE [Suspect]
     Indication: ARRHYTHMIA
     Route: 048
     Dates: start: 19870701, end: 19920501
  3. LANOXIN [Suspect]
     Indication: GLOMERULONEPHRITIS CHRONIC
     Dosage: DOSE: UNK
  4. ALDACTONE [Suspect]
     Indication: MYOCARDIAL ISCHAEMIA
  5. ENALAPRIL MALEATE [Suspect]
     Indication: CARDIAC FAILURE CONGESTIVE
     Dosage: DOSE: UNK
  6. ISORDIL [Suspect]
     Indication: CARDIAC FAILURE CONGESTIVE
  7. MINIPRESS [Suspect]
     Indication: CARDIAC DISORDER

REACTIONS (3)
  - PULMONARY FIBROSIS [None]
  - PULMONARY OEDEMA [None]
  - RENAL FAILURE CHRONIC [None]
